FAERS Safety Report 20766251 (Version 2)
Quarter: 2022Q2

REPORT INFORMATION
  Report Type: Spontaneous
  Country: US (occurrence: US)
  Receive Date: 20220428
  Receipt Date: 20220530
  Transmission Date: 20220721
  Serious: Yes (Death, Other)
  Sender: FDA-Public Use
  Company Number: US-SEAGEN-2022SGN04034

PATIENT
  Sex: Female

DRUGS (3)
  1. TIVDAK [Suspect]
     Active Substance: TISOTUMAB VEDOTIN-TFTV
     Indication: Cervix carcinoma
     Dosage: 2 MG/KG, Q3WEEKS
     Route: 065
     Dates: start: 20220323, end: 20220411
  2. MS CONTIN [Concomitant]
     Active Substance: MORPHINE SULFATE
     Indication: Pain
     Dosage: 100 MG, Q12HRS, PRN
     Route: 065
  3. HYDROXYZINE [Suspect]
     Active Substance: HYDROXYZINE HYDROCHLORIDE
     Indication: Rash
     Route: 065

REACTIONS (6)
  - Death [Fatal]
  - Pulmonary embolism [Unknown]
  - Dyspnoea [Unknown]
  - Headache [Unknown]
  - Gait inability [Unknown]
  - Vomiting [Unknown]

NARRATIVE: CASE EVENT DATE: 20220411
